FAERS Safety Report 9444639 (Version 1)
Quarter: 2013Q3

REPORT INFORMATION
  Report Type: Spontaneous
  Country: US (occurrence: US)
  Receive Date: 20130807
  Receipt Date: 20130807
  Transmission Date: 20140515
  Serious: Yes (Hospitalization)
  Sender: FDA-Public Use
  Company Number: US-BAYER-2013-095129

PATIENT
  Age: 41 Year
  Sex: Female

DRUGS (3)
  1. YASMIN [Suspect]
  2. ALPRAZOLAM [Concomitant]
     Indication: ANXIETY
     Dosage: 0.25 MG, UNK
     Route: 048
     Dates: start: 20081223
  3. XANAX [Concomitant]
     Indication: ANXIETY

REACTIONS (1)
  - Deep vein thrombosis [Recovered/Resolved]
